FAERS Safety Report 24596233 (Version 2)
Quarter: 2024Q4

REPORT INFORMATION
  Report Type: Spontaneous
  Country: US (occurrence: US)
  Receive Date: 20241110
  Receipt Date: 20241122
  Transmission Date: 20250114
  Serious: No
  Sender: LUPIN
  Company Number: US-LUPIN PHARMACEUTICALS INC.-2024-10738

PATIENT

DRUGS (1)
  1. ALBUTEROL SULFATE [Suspect]
     Active Substance: ALBUTEROL SULFATE
     Indication: Asthma
     Dosage: UNK, PRN, TWO PUFFS BY MOUTH EVERY SIX HOURS AS NEEDED

REACTIONS (4)
  - Therapeutic product ineffective [Unknown]
  - Dyspnoea [Unknown]
  - Device malfunction [Unknown]
  - Wrong technique in product usage process [Unknown]
